FAERS Safety Report 23207747 (Version 1)
Quarter: 2023Q4

REPORT INFORMATION
  Report Type: Spontaneous
  Country: DE (occurrence: DE)
  Receive Date: 20231121
  Receipt Date: 20231121
  Transmission Date: 20240110
  Serious: Yes (Other)
  Sender: FDA-Public Use
  Company Number: None

PATIENT
  Age: 34 Year
  Sex: Male
  Weight: 82 kg

DRUGS (3)
  1. TADALAFIL [Suspect]
     Active Substance: TADALAFIL
     Indication: Erectile dysfunction
     Dosage: 5 MG MORNING AND EVENING
     Route: 048
     Dates: start: 20230918, end: 20231014
  2. TADALAFIL [Suspect]
     Active Substance: TADALAFIL
     Indication: Sexual dysfunction
  3. TAMOXIFEN [Concomitant]
     Active Substance: TAMOXIFEN
     Indication: Product used for unknown indication
     Dosage: 20MG, 10MG, 5MG
     Dates: start: 202308

REACTIONS (6)
  - Erectile dysfunction [Recovered/Resolved with Sequelae]
  - Apathy [Unknown]
  - Crying [Unknown]
  - Depression [Unknown]
  - Depressed mood [Unknown]
  - Drug ineffective [Unknown]
